FAERS Safety Report 14790069 (Version 1)
Quarter: 2018Q2

REPORT INFORMATION
  Report Type: Report from Study
  Country: US (occurrence: US)
  Receive Date: 20180423
  Receipt Date: 20180423
  Transmission Date: 20180711
  Serious: Yes (Hospitalization, Other)
  Sender: FDA-Public Use
  Company Number: PHEH2018US014647

PATIENT
  Sex: Male

DRUGS (1)
  1. ENTRESTO [Suspect]
     Active Substance: SACUBITRIL\VALSARTAN
     Indication: PRODUCT USED FOR UNKNOWN INDICATION
     Route: 065

REACTIONS (7)
  - Diabetes mellitus [Unknown]
  - Asthenia [Recovering/Resolving]
  - Thyroid disorder [Unknown]
  - Decreased appetite [Unknown]
  - Sleep disorder due to general medical condition, insomnia type [Unknown]
  - Ear infection [Unknown]
  - Memory impairment [Unknown]
